FAERS Safety Report 10223654 (Version 2)
Quarter: 2014Q2

REPORT INFORMATION
  Report Type: Report from Study
  Country: US (occurrence: US)
  Receive Date: 20140609
  Receipt Date: 20140609
  Transmission Date: 20141212
  Serious: Yes (Hospitalization)
  Sender: FDA-Public Use
  Company Number: US-ROCHE-1403357

PATIENT
  Sex: Female
  Weight: 75.36 kg

DRUGS (4)
  1. AVASTIN [Suspect]
     Indication: LUNG NEOPLASM MALIGNANT
     Route: 065
     Dates: start: 20140418
  2. INSULIN [Concomitant]
     Indication: DIABETES MELLITUS
     Dosage: DOSE-10 U,?START DATE- 2 YEARS AGO
     Route: 065
  3. LANTUS [Concomitant]
     Indication: DIABETES MELLITUS
     Dosage: DOSE-10 U?START DATE- 2 YEARS AGO
     Route: 065
  4. PREVACID [Concomitant]
     Indication: DYSPEPSIA
     Dosage: START DATE-10 YEARS
     Route: 048

REACTIONS (6)
  - Blood potassium increased [Not Recovered/Not Resolved]
  - Dyspepsia [Recovering/Resolving]
  - Fall [Not Recovered/Not Resolved]
  - Skin exfoliation [Not Recovered/Not Resolved]
  - Constipation [Not Recovered/Not Resolved]
  - Protein urine present [Not Recovered/Not Resolved]
